FAERS Safety Report 4830523-2 (Version None)
Quarter: 2005Q4

REPORT INFORMATION
  Report Type: 
  Country: None (occurrence: None)
  Receive Date: 20051115
  Receipt Date: 20051101
  Transmission Date: 20060501
  Serious: Yes (Life-Threatening)
  Sender: FDA-Public Use
  Company Number: 02100-JPN-05-0508

PATIENT
  Age: 86 Year
  Sex: Female

DRUGS (10)
  1. CILOSTAZOL [Suspect]
     Indication: CEREBRAL INFARCTION
     Dosage: 200 MG, ORAL
     Route: 048
     Dates: start: 20050815, end: 20050820
  2. FLAVOXATE HCL [Suspect]
     Dosage: ORAL
     Route: 048
     Dates: start: 20050816, end: 20050820
  3. TELMISARTAN [Concomitant]
  4. ASPIRIN [Concomitant]
  5. FUROSEMIDE [Concomitant]
  6. FAMOTIDINE [Concomitant]
  7. BENIDIPINE HYDROCHLORIDE [Concomitant]
  8. NICORANDIL [Concomitant]
  9. VALPROATE SODIUM [Concomitant]
  10. URAPIDIL [Concomitant]

REACTIONS (7)
  - ACUTE PRERENAL FAILURE [None]
  - ATRIAL FIBRILLATION [None]
  - BLOOD PRESSURE DECREASED [None]
  - CYANOSIS [None]
  - DYSPNOEA [None]
  - LOW CARDIAC OUTPUT SYNDROME [None]
  - OXYGEN SATURATION DECREASED [None]
